FAERS Safety Report 16159857 (Version 1)
Quarter: 2019Q2

REPORT INFORMATION
  Report Type: Spontaneous
  Country: CA (occurrence: CA)
  Receive Date: 20190404
  Receipt Date: 20190404
  Transmission Date: 20190711
  Serious: Yes (Other)
  Sender: FDA-Public Use
  Company Number: CA-GUERBET-CA-20190004

PATIENT
  Age: 82 Year
  Sex: Male

DRUGS (4)
  1. CEFAZOLIN [Concomitant]
     Active Substance: CEFAZOLIN
     Indication: ANTIBIOTIC PROPHYLAXIS
     Route: 065
  2. N-CYANOACRYLATE GLUE [Concomitant]
     Indication: THERAPEUTIC EMBOLISATION
     Route: 013
  3. LIPIODOL [Suspect]
     Active Substance: ETHIODIZED OIL
     Indication: THERAPEUTIC EMBOLISATION
     Route: 013
  4. METRONIDAZOLE. [Concomitant]
     Active Substance: METRONIDAZOLE
     Indication: ANTIBIOTIC PROPHYLAXIS
     Route: 065

REACTIONS (2)
  - Graft infection [Recovered/Resolved]
  - Product use in unapproved indication [Recovered/Resolved]
